FAERS Safety Report 7288630-3 (Version None)
Quarter: 2011Q1

REPORT INFORMATION
  Report Type: 
  Country: None (occurrence: None)
  Receive Date: 20110211
  Receipt Date: 20110207
  Transmission Date: 20110831
  Serious: Yes (Death, Hospitalization)
  Sender: FDA-Public Use
  Company Number: AU-SANOFI-AVENTIS-2011SA008181

PATIENT
  Age: 79 Year
  Sex: Male

DRUGS (13)
  1. PREDNISOLONE [Suspect]
     Indication: PROSTATE CANCER
     Route: 048
     Dates: start: 20100729
  2. PANADOL [Concomitant]
  3. NEXIUM [Concomitant]
  4. INVESTIGATIONAL DRUG [Suspect]
     Indication: PROSTATE CANCER
     Route: 048
     Dates: start: 20100729
  5. MAXOLON [Concomitant]
  6. TAXOTERE [Suspect]
     Indication: PROSTATE CANCER
     Route: 051
     Dates: start: 20100729, end: 20100729
  7. MOBIC [Concomitant]
  8. TRAMADOL HCL [Concomitant]
  9. DI-GESIC [Concomitant]
  10. STEMETIL [Concomitant]
  11. BUDESONIDE/FORMOTEROL [Concomitant]
  12. RAMIPRIL [Concomitant]
  13. TILADE [Concomitant]

REACTIONS (4)
  - SEPTIC SHOCK [None]
  - PNEUMONIA ASPIRATION [None]
  - CARDIO-RESPIRATORY ARREST [None]
  - PSEUDOMONAL SEPSIS [None]
